FAERS Safety Report 16099325 (Version 1)
Quarter: 2019Q1

REPORT INFORMATION
  Report Type: Report from Study
  Country: BR (occurrence: BR)
  Receive Date: 20190321
  Receipt Date: 20190321
  Transmission Date: 20190418
  Serious: Yes (Other)
  Sender: FDA-Public Use
  Company Number: PHHY2019BR062146

PATIENT
  Sex: Male
  Weight: 96 kg

DRUGS (1)
  1. COSENTYX [Suspect]
     Active Substance: SECUKINUMAB
     Indication: PSORIATIC ARTHROPATHY
     Dosage: 300 MG, UNK
     Route: 058
     Dates: start: 2018

REACTIONS (4)
  - Yellow fever [Unknown]
  - Foot fracture [Recovering/Resolving]
  - Decreased immune responsiveness [Not Recovered/Not Resolved]
  - Pulpitis dental [Recovering/Resolving]

NARRATIVE: CASE EVENT DATE: 2018
